FAERS Safety Report 13762353 (Version 26)
Quarter: 2025Q2

REPORT INFORMATION
  Report Type: Spontaneous
  Country: US (occurrence: US)
  Receive Date: 20170718
  Receipt Date: 20250506
  Transmission Date: 20250717
  Serious: Yes (Hospitalization, Other)
  Sender: PFIZER
  Company Number: US-PFIZER INC-2017301253

PATIENT
  Age: 59 Year
  Sex: Male
  Weight: 61 kg

DRUGS (9)
  1. XELJANZ XR [Suspect]
     Active Substance: TOFACITINIB CITRATE
     Indication: Rheumatoid arthritis
     Dosage: 11 MG, 1X/DAY
     Route: 048
     Dates: start: 20170514
  2. XELJANZ XR [Suspect]
     Active Substance: TOFACITINIB CITRATE
     Dosage: 11 MG, 1X/DAY
     Route: 048
     Dates: end: 2018
  3. XELJANZ XR [Suspect]
     Active Substance: TOFACITINIB CITRATE
     Dosage: 11 MG, DAILY
     Route: 048
  4. XELJANZ XR [Suspect]
     Active Substance: TOFACITINIB CITRATE
     Route: 048
     Dates: start: 2018
  5. XELJANZ XR [Suspect]
     Active Substance: TOFACITINIB CITRATE
     Route: 048
  6. ORENCIA [Concomitant]
     Active Substance: ABATACEPT
     Dates: start: 2017
  7. PREDNISONE [Concomitant]
     Active Substance: PREDNISONE
     Indication: Rheumatoid arthritis
     Dosage: 10 MG, 1X/DAY
     Dates: start: 2001
  8. PREDNISONE [Concomitant]
     Active Substance: PREDNISONE
     Dosage: 10 MG, 1X/DAY
     Dates: start: 2017
  9. METFORMIN [Concomitant]
     Active Substance: METFORMIN HYDROCHLORIDE
     Indication: Diabetes mellitus
     Dosage: 1000 MG, DAILY (2 TABLETS)
     Route: 048

REACTIONS (19)
  - Deep vein thrombosis [Unknown]
  - Thrombosis [Unknown]
  - Senile dementia [Unknown]
  - Neoplasm malignant [Unknown]
  - Lymphocytic leukaemia [Unknown]
  - Cataract [Unknown]
  - Fall [Unknown]
  - Product dispensing error [Unknown]
  - Rash papular [Recovering/Resolving]
  - Hypertension [Unknown]
  - Peripheral swelling [Unknown]
  - Joint swelling [Unknown]
  - Osteopenia [Unknown]
  - Spinal disorder [Unknown]
  - Urticaria [Unknown]
  - Drug hypersensitivity [Unknown]
  - Gait inability [Unknown]
  - Movement disorder [Unknown]
  - Gait disturbance [Unknown]

NARRATIVE: CASE EVENT DATE: 20170703
